FAERS Safety Report 6341722-5 (Version None)
Quarter: 2009Q3

REPORT INFORMATION
  Report Type: 
  Country: None (occurrence: None)
  Receive Date: 20090904
  Receipt Date: 20090826
  Transmission Date: 20100115
  Serious: Yes (Hospitalization)
  Sender: FDA-Public Use
  Company Number: JP-JNJFOC-20090809359

PATIENT
  Age: 17 Year
  Sex: Female

DRUGS (7)
  1. REMICADE [Suspect]
     Dosage: WEEK 0 OF STUDY DRUG
     Route: 042
  2. REMICADE [Suspect]
     Dosage: 2ND INFUSION (COMMERCIAL DRUG)
     Route: 042
  3. REMICADE [Suspect]
     Indication: CROHN'S DISEASE
     Dosage: 1ST INFUSION (COMMERCIAL DRUG)
     Route: 042
  4. PENTASA [Concomitant]
     Route: 048
  5. APLACE [Concomitant]
     Route: 048
  6. ELENTAL [Concomitant]
     Route: 048
  7. GASTER D [Concomitant]
     Route: 048

REACTIONS (2)
  - CROHN'S DISEASE [None]
  - INTESTINAL RESECTION [None]
